FAERS Safety Report 9365400 (Version 1)
Quarter: 2013Q2

REPORT INFORMATION
  Report Type: Spontaneous
  Country: US (occurrence: None)
  Receive Date: 20130624
  Receipt Date: 20130624
  Transmission Date: 20140414
  Serious: Yes (Other)
  Sender: FDA-Public Use
  Company Number: None

PATIENT
  Age: 72 Year
  Sex: Female
  Weight: 99.79 kg

DRUGS (1)
  1. VALSARTAN-HCTZ [Suspect]
     Indication: HYPERTENSION
     Dates: start: 20130515, end: 20130603

REACTIONS (6)
  - Dizziness [None]
  - Dizziness [None]
  - Fatigue [None]
  - Fatigue [None]
  - Malaise [None]
  - Disturbance in attention [None]
